FAERS Safety Report 19193928 (Version 1)
Quarter: 2021Q2

REPORT INFORMATION
  Report Type: Report from Study
  Country: CA (occurrence: CA)
  Receive Date: 20210429
  Receipt Date: 20210429
  Transmission Date: 20210717
  Serious: Yes (Hospitalization)
  Sender: FDA-Public Use
  Company Number: CA-ORION CORPORATION ORION PHARMA-21_00014164

PATIENT
  Age: 65 Year
  Sex: Female

DRUGS (7)
  1. METHOTREXATE (TRADE NAME UNKNOWN) [Suspect]
     Active Substance: METHOTREXATE
     Indication: PRODUCT USED FOR UNKNOWN INDICATION
     Route: 065
  2. AMITRIPTYLINE [Concomitant]
     Active Substance: AMITRIPTYLINE
     Route: 065
  3. ZOPICLONE [Concomitant]
     Active Substance: ZOPICLONE
     Route: 065
  4. RITUXIMAB. [Suspect]
     Active Substance: RITUXIMAB
     Indication: RHEUMATOID ARTHRITIS
     Route: 042
  5. CALCIUM [Concomitant]
     Active Substance: CALCIUM
     Route: 065
  6. VENLAFAXINE [Concomitant]
     Active Substance: VENLAFAXINE HYDROCHLORIDE
     Route: 065
  7. ACLASTA [Concomitant]
     Active Substance: ZOLEDRONIC ACID
     Indication: OSTEOPOROSIS
     Route: 065

REACTIONS (4)
  - Dizziness [Unknown]
  - Vertigo [Unknown]
  - Pulmonary toxicity [Unknown]
  - Headache [Unknown]
